FAERS Safety Report 20883318 (Version 2)
Quarter: 2022Q2

REPORT INFORMATION
  Report Type: Spontaneous
  Country: ID (occurrence: ID)
  Receive Date: 20220527
  Receipt Date: 20220527
  Transmission Date: 20220720
  Serious: Yes (Death, Other)
  Sender: FDA-Public Use
  Company Number: ID-PFIZER INC-202200731168

PATIENT
  Age: 53 Year
  Sex: Male

DRUGS (4)
  1. CARBOPLATIN [Suspect]
     Active Substance: CARBOPLATIN
     Indication: Sarcomatoid carcinoma of the lung
     Dosage: UNK
  2. CARBOPLATIN [Suspect]
     Active Substance: CARBOPLATIN
     Indication: Haemothorax
  3. PEMETREXED [Suspect]
     Active Substance: PEMETREXED
     Indication: Sarcomatoid carcinoma of the lung
     Dosage: UNK
  4. PEMETREXED [Suspect]
     Active Substance: PEMETREXED
     Indication: Haemothorax

REACTIONS (1)
  - Neoplasm progression [Fatal]
